FAERS Safety Report 7516123-4 (Version None)
Quarter: 2011Q2

REPORT INFORMATION
  Report Type: 
  Country: None (occurrence: None)
  Receive Date: 20110601
  Receipt Date: 20110523
  Transmission Date: 20111010
  Serious: Yes (Other)
  Sender: FDA-Public Use
  Company Number: KR-ROCHE-778765

PATIENT

DRUGS (7)
  1. CETUXIMAB [Suspect]
     Dosage: INITIAL DOSE
     Route: 065
  2. CETUXIMAB [Suspect]
     Route: 065
  3. LEUCOVORIN CALCIUM [Suspect]
     Route: 065
  4. FLUOROURACIL [Suspect]
     Route: 065
  5. OXALIPLATIN [Suspect]
     Route: 065
  6. BEVACIZUMAB [Suspect]
     Route: 065
  7. IRINOTECAN HYDROCHLORIDE [Suspect]
     Route: 065

REACTIONS (1)
  - HAEMATOTOXICITY [None]
